FAERS Safety Report 8264277-7 (Version None)
Quarter: 2012Q2

REPORT INFORMATION
  Report Type: 
  Country: None (occurrence: None)
  Receive Date: 20120406
  Receipt Date: 20120402
  Transmission Date: 20120825
  Serious: No
  Sender: FDA-Public Use
  Company Number: US-PFIZER INC-2012083907

PATIENT
  Sex: Female

DRUGS (9)
  1. COREG [Suspect]
     Dosage: UNK
  2. TYLOX [Suspect]
     Dosage: UNK
  3. AVANDIA [Suspect]
     Dosage: UNK
  4. PRECOSE [Suspect]
     Dosage: UNK
  5. OXYCONTIN [Suspect]
     Dosage: UNK
  6. METFORMIN HCL [Suspect]
     Dosage: UNK
  7. NAPROXEN [Suspect]
     Dosage: UNK
  8. MORPHINE SULFATE [Suspect]
     Dosage: UNK
  9. CAFFEINE CITRATE [Suspect]
     Dosage: UNK

REACTIONS (1)
  - DRUG HYPERSENSITIVITY [None]
